FAERS Safety Report 14531549 (Version 2)
Quarter: 2018Q3

REPORT INFORMATION
  Report Type: Spontaneous
  Country: IT (occurrence: IT)
  Receive Date: 20180214
  Receipt Date: 20180703
  Transmission Date: 20181010
  Serious: Yes (Other)
  Sender: FDA-Public Use
  Company Number: IT-SA-2018SA027568

PATIENT
  Age: 28 Year
  Sex: Female

DRUGS (2)
  1. FERLIXIT [Suspect]
     Active Substance: SODIUM FERRIC GLUCONATE COMPLEX
     Indication: GASTROOESOPHAGEAL REFLUX DISEASE
     Dosage: 125 MG, TOTAL
     Route: 042
     Dates: start: 20171113
  2. FERLIXIT [Suspect]
     Active Substance: SODIUM FERRIC GLUCONATE COMPLEX
     Indication: DEFICIENCY ANAEMIA

REACTIONS (6)
  - Nausea [Recovered/Resolved]
  - Oedema peripheral [Recovered/Resolved]
  - Chest discomfort [Recovered/Resolved]
  - Hypotension [Recovered/Resolved]
  - Pain [Recovered/Resolved]
  - Arthralgia [Recovered/Resolved]

NARRATIVE: CASE EVENT DATE: 20171113
